FAERS Safety Report 8914351 (Version 2)
Quarter: 2012Q4

REPORT INFORMATION
  Report Type: 
  Country: HU (occurrence: HU)
  Receive Date: 20121116
  Receipt Date: 20121122
  Transmission Date: 20130627
  Serious: Yes (Hospitalization)
  Sender: FDA-Public Use
  Company Number: HU-US-EMD SERONO, INC.-7173453

PATIENT
  Age: 9 Year
  Sex: Male

DRUGS (6)
  1. SAIZEN [Suspect]
     Indication: GROWTH HORMONE DEFICIENCY
     Route: 058
     Dates: start: 200904, end: 200904
  2. SAIZEN [Suspect]
     Dates: start: 20090625
  3. SAIZEN [Suspect]
     Dates: start: 20091006
  4. VASOPRESSIN [Concomitant]
     Indication: PRODUCT USED FOR UNKNOWN INDICATION
     Dates: start: 200904
  5. HYDROCORTISONE [Concomitant]
     Indication: PRODUCT USED FOR UNKNOWN INDICATION
     Dates: start: 200904
  6. LEVOTHYROXINE [Concomitant]
     Indication: HORMONE REPLACEMENT THERAPY
     Dates: start: 200904

REACTIONS (1)
  - Intracranial pressure increased [Recovered/Resolved]
